FAERS Safety Report 6237112-6 (Version None)
Quarter: 2009Q2

REPORT INFORMATION
  Report Type: 
  Country: None (occurrence: None)
  Receive Date: 20090619
  Receipt Date: 20090414
  Transmission Date: 20091009
  Serious: No
  Sender: FDA-Public Use
  Company Number: US-ASTRAZENECA-2009UW09437

PATIENT
  Age: 63 Year
  Sex: Female

DRUGS (7)
  1. SYMBICORT [Suspect]
     Dosage: 80/4.5 MCG 2 PUFFS
     Route: 055
     Dates: start: 20090410
  2. LEVOXYL [Concomitant]
  3. LISINOPRIL [Concomitant]
  4. FOLIC ACID [Concomitant]
  5. METHADONE [Concomitant]
  6. POTASSIUM CHLORIDE [Concomitant]
  7. HYDROCHLOROTHIAZIDE [Concomitant]

REACTIONS (3)
  - HYPERHIDROSIS [None]
  - HYPERTENSION [None]
  - TACHYCARDIA [None]
